FAERS Safety Report 10887358 (Version 1)
Quarter: 2015Q1

REPORT INFORMATION
  Report Type: Spontaneous
  Country: US (occurrence: US)
  Receive Date: 20150304
  Receipt Date: 20150304
  Transmission Date: 20150721
  Serious: No
  Sender: FDA-Public Use
  Company Number: US-AMGEN-USASP2014036577

PATIENT
  Sex: Female

DRUGS (1)
  1. ENBREL [Suspect]
     Active Substance: ETANERCEPT
     Indication: BENIGN FAMILIAL PEMPHIGUS
     Dosage: 50 MG, 2 TIMES/WK
     Route: 058

REACTIONS (2)
  - Pain of skin [Unknown]
  - Skin exfoliation [Unknown]
